FAERS Safety Report 11718977 (Version 2)
Quarter: 2015Q4

REPORT INFORMATION
  Report Type: Spontaneous
  Country: US (occurrence: US)
  Receive Date: 20151110
  Receipt Date: 20151221
  Transmission Date: 20160304
  Serious: No
  Sender: FDA-Public Use
  Company Number: US-GLAXOSMITHKLINE-A0946785A

PATIENT
  Age: 79 Year
  Sex: Female

DRUGS (14)
  1. DILTIAZEM [Concomitant]
     Active Substance: DILTIAZEM
  2. POTASSIUM [Concomitant]
     Active Substance: POTASSIUM
  3. CALTRATE [Concomitant]
     Active Substance: CALCIUM CARBONATE
  4. ADVAIR DISKUS [Suspect]
     Active Substance: FLUTICASONE PROPIONATE\SALMETEROL XINAFOATE
     Indication: CHRONIC OBSTRUCTIVE PULMONARY DISEASE
     Dosage: 1 PUFF(S), BID
     Route: 055
     Dates: start: 201104
  5. DIOVAN [Concomitant]
     Active Substance: VALSARTAN
  6. PRILOSEC [Concomitant]
     Active Substance: OMEPRAZOLE MAGNESIUM
  7. FEXOFENADINE [Concomitant]
     Active Substance: FEXOFENADINE\FEXOFENADINE HYDROCHLORIDE
  8. LEVOTHYROXINE. [Concomitant]
     Active Substance: LEVOTHYROXINE
  9. SINGULAIR [Concomitant]
     Active Substance: MONTELUKAST SODIUM
  10. FUROSEMID [Concomitant]
     Active Substance: FUROSEMIDE
  11. ADVAIR DISKUS [Suspect]
     Active Substance: FLUTICASONE PROPIONATE\SALMETEROL XINAFOATE
     Dosage: UNK
     Dates: start: 1990
  12. VITAMIN C [Concomitant]
     Active Substance: ASCORBIC ACID
  13. SPIRIVA [Concomitant]
     Active Substance: TIOTROPIUM BROMIDE MONOHYDRATE
  14. LOVAZA [Concomitant]
     Active Substance: OMEGA-3-ACID ETHYL ESTERS

REACTIONS (4)
  - Oral candidiasis [Not Recovered/Not Resolved]
  - Medication error [Unknown]
  - Dysphonia [Unknown]
  - Treatment noncompliance [Unknown]

NARRATIVE: CASE EVENT DATE: 201106
